FAERS Safety Report 7745665-1 (Version None)
Quarter: 2011Q3

REPORT INFORMATION
  Report Type: 
  Country: None (occurrence: None)
  Receive Date: 20110829
  Receipt Date: 20110822
  Transmission Date: 20111222
  Serious: Yes (Hospitalization)
  Sender: FDA-Public Use
  Company Number: 2011SP035758

PATIENT
  Age: 49 Year
  Sex: Male

DRUGS (1)
  1. PEGATRON (PEGYLATED INTERFERON ALFA-2B W/RIBAVIRIN) [Suspect]
     Indication: HEPATITIS C
     Dates: start: 20110707

REACTIONS (8)
  - HYPERHIDROSIS [None]
  - THIRST [None]
  - CHOLECYSTITIS INFECTIVE [None]
  - HEADACHE [None]
  - CHOLELITHIASIS [None]
  - GALLBLADDER OPERATION [None]
  - INFLUENZA LIKE ILLNESS [None]
  - PAIN [None]
